FAERS Safety Report 5814670-4 (Version None)
Quarter: 2008Q3

REPORT INFORMATION
  Report Type: 
  Country: None (occurrence: None)
  Receive Date: 20080718
  Receipt Date: 20080212
  Transmission Date: 20090109
  Serious: No
  Sender: FDA-Public Use
  Company Number: US-KINGPHARMUSA00001-K200800196

PATIENT

DRUGS (2)
  1. LEVOXYL [Suspect]
     Indication: THYROID DISORDER
     Dosage: 100 MCG, UNK
     Dates: start: 19980101
  2. LEVOXYL [Suspect]
     Dosage: 112 MCG, UNK

REACTIONS (3)
  - EYE SWELLING [None]
  - TENSION [None]
  - UNEVALUABLE EVENT [None]
